FAERS Safety Report 12817467 (Version 2)
Quarter: 2016Q4

REPORT INFORMATION
  Report Type: Spontaneous
  Country: CA (occurrence: CA)
  Receive Date: 20161005
  Receipt Date: 20161104
  Transmission Date: 20170207
  Serious: Yes (Death, Hospitalization, Other)
  Sender: FDA-Public Use
  Company Number: CA-ACTELION-A-US2016-142873

PATIENT
  Age: 61 Year
  Sex: Female
  Weight: 43.99 kg

DRUGS (13)
  1. LIPITOR [Concomitant]
     Active Substance: ATORVASTATIN CALCIUM
  2. OXYGEN. [Concomitant]
     Active Substance: OXYGEN
  3. NASONEX [Concomitant]
     Active Substance: MOMETASONE FUROATE
  4. CODEINE [Concomitant]
     Active Substance: CODEINE
  5. CALCIUM [Concomitant]
     Active Substance: CALCIUM
  6. LASIX [Concomitant]
     Active Substance: FUROSEMIDE
  7. UPTRAVI [Suspect]
     Active Substance: SELEXIPAG
     Indication: PULMONARY ARTERIAL HYPERTENSION
     Dosage: 1200 MCG, BID
     Route: 048
     Dates: start: 20160615
  8. COUMADIN [Concomitant]
     Active Substance: WARFARIN SODIUM
     Dosage: 2.5 MG, UNK
  9. ADCIRCA [Concomitant]
     Active Substance: TADALAFIL
  10. VOLIBRIS [Concomitant]
     Active Substance: AMBRISENTAN
  11. COUMADIN [Concomitant]
     Active Substance: WARFARIN SODIUM
     Dosage: 5 MG, UNK
  12. ATIVAN [Concomitant]
     Active Substance: LORAZEPAM
  13. VITAMIN D [Concomitant]
     Active Substance: CHOLECALCIFEROL

REACTIONS (6)
  - Diarrhoea [Not Recovered/Not Resolved]
  - Nausea [Not Recovered/Not Resolved]
  - Gastric disorder [Not Recovered/Not Resolved]
  - Rectal haemorrhage [Not Recovered/Not Resolved]
  - Clostridium difficile infection [Fatal]
  - Pulmonary arterial hypertension [Fatal]

NARRATIVE: CASE EVENT DATE: 20160922
